FAERS Safety Report 8582908-9 (Version None)
Quarter: 2012Q3

REPORT INFORMATION
  Report Type: 
  Country: None (occurrence: None)
  Receive Date: 20120727
  Receipt Date: 20120713
  Transmission Date: 20120928
  Serious: Yes (Hospitalization, Other)
  Sender: FDA-Public Use
  Company Number: 2010000703

PATIENT
  Age: 61 Year
  Sex: Male
  Weight: 70 kg

DRUGS (4)
  1. TARCEVA [Suspect]
     Indication: LUNG NEOPLASM MALIGNANT
     Dosage: 150 MG, UID/QD, ORAL
     Route: 048
     Dates: start: 20091127, end: 20100222
  2. METOPROLOL TARTRATE [Concomitant]
  3. LIPITOR [Concomitant]
  4. MORPHINE SULFATE [Concomitant]

REACTIONS (14)
  - YELLOW SKIN [None]
  - INTESTINAL OBSTRUCTION [None]
  - RASH ERYTHEMATOUS [None]
  - VISION BLURRED [None]
  - EYELID MARGIN CRUSTING [None]
  - RASH [None]
  - DIARRHOEA [None]
  - NAUSEA [None]
  - SCAB [None]
  - DRY SKIN [None]
  - ERYTHEMA [None]
  - OCULAR ICTERUS [None]
  - SEBORRHOEIC DERMATITIS [None]
  - VOMITING [None]
